FAERS Safety Report 5640681-8 (Version None)
Quarter: 2008Q1

REPORT INFORMATION
  Report Type: 
  Country: None (occurrence: None)
  Receive Date: 20080131
  Receipt Date: 20071108
  Transmission Date: 20080703
  Serious: No
  Sender: FDA-Public Use
  Company Number: 163-21880-07110527

PATIENT
  Age: 58 Year
  Sex: Female

DRUGS (2)
  1. REVLIMID [Suspect]
     Indication: MULTIPLE MYELOMA
     Dosage: 15 MG, DAILY X 21 DAYS, ORAL ; 25 MG, DAILY X 21 DAYS, ORAL
     Route: 048
     Dates: start: 20071009, end: 20071101
  2. REVLIMID [Suspect]
     Indication: MULTIPLE MYELOMA
     Dosage: 15 MG, DAILY X 21 DAYS, ORAL ; 25 MG, DAILY X 21 DAYS, ORAL
     Route: 048
     Dates: start: 20071108

REACTIONS (3)
  - DIZZINESS [None]
  - INSOMNIA [None]
  - PARAESTHESIA [None]
